FAERS Safety Report 25713408 (Version 1)
Quarter: 2025Q3

REPORT INFORMATION
  Report Type: Report from Study
  Country: GB (occurrence: GB)
  Receive Date: 20250822
  Receipt Date: 20250822
  Transmission Date: 20251021
  Serious: Yes (Other)
  Sender: TEVA
  Company Number: GB-TEVA-VS-3363645

PATIENT
  Age: 65 Year
  Sex: Male

DRUGS (1)
  1. AJOVY [Suspect]
     Active Substance: FREMANEZUMAB-VFRM
     Indication: Migraine
     Dosage: AJOVY 225MG/1.5ML PFP 3
     Route: 058

REACTIONS (7)
  - Cerebral angioplasty [Unknown]
  - Gait inability [Unknown]
  - Eye disorder [Unknown]
  - Ataxia [Unknown]
  - Cerebrovascular accident [Unknown]
  - Migraine [Unknown]
  - Vertigo [Unknown]
